FAERS Safety Report 9667298 (Version 1)
Quarter: 2013Q4

REPORT INFORMATION
  Report Type: Spontaneous
  Country: US (occurrence: US)
  Receive Date: 20131104
  Receipt Date: 20131104
  Transmission Date: 20140711
  Serious: No
  Sender: FDA-Public Use
  Company Number: US-BIOGENIDEC-2013BI090701

PATIENT
  Sex: Female

DRUGS (6)
  1. TECFIDERA [Suspect]
     Indication: MULTIPLE SCLEROSIS
     Route: 048
     Dates: start: 20130710
  2. OXYCODONE HCL [Concomitant]
  3. LORATIDINE [Concomitant]
  4. DILTIAZEM HCL ER BEADS [Concomitant]
  5. NTROSTAT [Concomitant]
  6. ZOLOFT [Concomitant]

REACTIONS (2)
  - Abdominal pain upper [Unknown]
  - Vomiting [Unknown]
